FAERS Safety Report 19497726 (Version 6)
Quarter: 2022Q1

REPORT INFORMATION
  Report Type: Spontaneous
  Country: US (occurrence: US)
  Receive Date: 20210706
  Receipt Date: 20220328
  Transmission Date: 20220423
  Serious: Yes (Other)
  Sender: FDA-Public Use
  Company Number: US-BAYER-2021-167702

PATIENT
  Sex: Male

DRUGS (17)
  1. KOVALTRY [Suspect]
     Active Substance: ANTIHEMOPHILIC FACTOR, HUMAN RECOMBINANT
     Indication: Factor VIII deficiency
     Dosage: 3000 U (+/- 10%), 4IW; EVERY 36 HOURS (4 TIMES A WEEK) AND DAILY AS NEEDED FOR BLEEDS); PROPHYLAXIS
     Route: 042
     Dates: start: 201905
  2. KOVALTRY [Suspect]
     Active Substance: ANTIHEMOPHILIC FACTOR, HUMAN RECOMBINANT
     Indication: Factor VIII deficiency
     Dosage: UNK
     Route: 042
  3. KOVALTRY [Suspect]
     Active Substance: ANTIHEMOPHILIC FACTOR, HUMAN RECOMBINANT
     Indication: Factor VIII deficiency
     Dosage: 4 DF, ONCE; TREATMENT FOR R ELBOW BLEED
     Route: 042
  4. KOVALTRY [Suspect]
     Active Substance: ANTIHEMOPHILIC FACTOR, HUMAN RECOMBINANT
     Indication: Factor VIII deficiency
     Dosage: USED A TOTAL OF 3-4 DOSES TO TREAT RIGHT ELBOW, RIGHT FOOT, AND LEFT KNEE BLEEDS
     Route: 042
  5. KOVALTRY [Suspect]
     Active Substance: ANTIHEMOPHILIC FACTOR, HUMAN RECOMBINANT
     Indication: Factor VIII deficiency
     Dosage: UNK
  6. KOVALTRY [Suspect]
     Active Substance: ANTIHEMOPHILIC FACTOR, HUMAN RECOMBINANT
     Indication: Factor VIII deficiency
     Dosage: UNK
  7. KOVALTRY [Suspect]
     Active Substance: ANTIHEMOPHILIC FACTOR, HUMAN RECOMBINANT
     Indication: Factor VIII deficiency
     Dosage: 3000 IU - DAILY UP TO 3 DOSES AS NEEDED FOR BREAKTHROUGH BLEEDING
     Route: 042
  8. KOVALTRY [Suspect]
     Active Substance: ANTIHEMOPHILIC FACTOR, HUMAN RECOMBINANT
     Indication: Factor VIII deficiency
     Dosage: 3000 IU - A COUPLE OF DOSES TO TREAT BREAKTHROUGH BLEEDING
     Route: 042
  9. HEMLIBRA [Suspect]
     Active Substance: EMICIZUMAB-KXWH
  10. CLONAZEPAM [Concomitant]
     Active Substance: CLONAZEPAM
  11. RESTASIS [Concomitant]
     Active Substance: CYCLOSPORINE
  12. MOMETASONE FUROATE [Concomitant]
     Active Substance: MOMETASONE FUROATE
  13. GABAPENTIN [Concomitant]
     Active Substance: GABAPENTIN
  14. LYSINE [Concomitant]
     Active Substance: LYSINE
  15. MINERALS\VITAMINS [Concomitant]
     Active Substance: MINERALS\VITAMINS
  16. ZINC [Concomitant]
     Active Substance: ZINC
  17. AMLODIPINE BESYLATE [Concomitant]
     Active Substance: AMLODIPINE BESYLATE

REACTIONS (5)
  - Haemarthrosis [None]
  - Haemarthrosis [None]
  - Haemorrhage [None]
  - Haemarthrosis [None]
  - Haemorrhage [None]
